FAERS Safety Report 12664748 (Version 2)
Quarter: 2016Q4

REPORT INFORMATION
  Report Type: Spontaneous
  Country: US (occurrence: US)
  Receive Date: 20160818
  Receipt Date: 20161028
  Transmission Date: 20170207
  Serious: Yes (Disabling)
  Sender: FDA-Public Use
  Company Number: US-009507513-1608USA007080

PATIENT
  Age: 27 Year
  Sex: Female
  Weight: 97.51 kg

DRUGS (1)
  1. NEXPLANON [Suspect]
     Active Substance: ETONOGESTREL
     Indication: CONTRACEPTION
     Dosage: 68 MG, 3 YEARS, IN THE SULCUS BICIPITALIS MEDIALIS (GROOVE BETWEEN BICEPS AND TRICEPS)
     Route: 059
     Dates: start: 20160627, end: 20160901

REACTIONS (5)
  - Device deployment issue [Recovered/Resolved]
  - Neuralgia [Not Recovered/Not Resolved]
  - Implant site pain [Not Recovered/Not Resolved]
  - Paraesthesia [Not Recovered/Not Resolved]
  - Migration of implanted drug [Recovered/Resolved]

NARRATIVE: CASE EVENT DATE: 2016
